FAERS Safety Report 8406818-2 (Version None)
Quarter: 2012Q2

REPORT INFORMATION
  Report Type: 
  Country: None (occurrence: None)
  Receive Date: 20120529
  Receipt Date: 20080116
  Transmission Date: 20120825
  Serious: Yes (Other)
  Sender: FDA-Public Use
  Company Number: 000879

PATIENT
  Age: 86 Year
  Sex: Male
  Weight: 45 kg

DRUGS (2)
  1. ASPIRIN [Concomitant]
  2. PLETAL [Suspect]
     Indication: CEREBRAL INFARCTION
     Dosage: 100 MG, BID, ORAL
     Route: 048
     Dates: start: 20080111, end: 20080112

REACTIONS (7)
  - PSYCHIATRIC SYMPTOM [None]
  - CEREBRAL INFARCTION [None]
  - IRRITABILITY [None]
  - URINARY INCONTINENCE [None]
  - ABNORMAL BEHAVIOUR [None]
  - CONFUSIONAL STATE [None]
  - INCOHERENT [None]
